FAERS Safety Report 8571003-0 (Version None)
Quarter: 2012Q3

REPORT INFORMATION
  Report Type: 
  Country: None (occurrence: None)
  Receive Date: 20120806
  Receipt Date: 20120724
  Transmission Date: 20120928
  Serious: No
  Sender: FDA-Public Use
  Company Number: US-009507513-1207USA011564

PATIENT

DRUGS (3)
  1. ZOVIRAX [Concomitant]
  2. NUVARING [Suspect]
     Dosage: UNK
     Route: 067
     Dates: start: 20060801
  3. VALTREX [Concomitant]

REACTIONS (1)
  - UNINTENDED PREGNANCY [None]
